FAERS Safety Report 6698695-5 (Version None)
Quarter: 2010Q2

REPORT INFORMATION
  Report Type: 
  Country: None (occurrence: None)
  Receive Date: 20100427
  Receipt Date: 20091117
  Transmission Date: 20101027
  Serious: No
  Sender: FDA-Public Use
  Company Number: US-ASTRAZENECA-2009SE27129

PATIENT
  Age: 51 Year
  Sex: Female
  Weight: 72.6 kg

DRUGS (2)
  1. ZOMIG [Suspect]
     Indication: MIGRAINE
     Dosage: 5MG-10MG PRN
     Route: 048
  2. ZOMIG [Suspect]
     Route: 048

REACTIONS (7)
  - CHEST DISCOMFORT [None]
  - HEAD DISCOMFORT [None]
  - MIGRAINE WITH AURA [None]
  - MUSCLE TIGHTNESS [None]
  - PAIN [None]
  - PRURITUS [None]
  - THROAT TIGHTNESS [None]
